FAERS Safety Report 24856787 (Version 1)
Quarter: 2025Q1

REPORT INFORMATION
  Report Type: Spontaneous
  Country: US (occurrence: None)
  Receive Date: 20250116
  Receipt Date: 20250116
  Transmission Date: 20250409
  Serious: Yes (Life-Threatening, Hospitalization)
  Sender: FDA-CTU
  Company Number: None

PATIENT
  Age: 33 Year
  Sex: Male
  Weight: 128.25 kg

DRUGS (4)
  1. JARDIANCE [Suspect]
     Active Substance: EMPAGLIFLOZIN
     Indication: Type 2 diabetes mellitus
     Dates: start: 20221101, end: 20230131
  2. DEXCOM [Concomitant]
  3. TRESIBA [Concomitant]
     Active Substance: INSULIN DEGLUDEC
  4. HUMALOG [Concomitant]
     Active Substance: INSULIN LISPRO

REACTIONS (2)
  - Diabetic ketoacidosis [None]
  - Pancreatitis [None]

NARRATIVE: CASE EVENT DATE: 20230131
